FAERS Safety Report 6699142-X (Version None)
Quarter: 2010Q2

REPORT INFORMATION
  Report Type: 
  Country: None (occurrence: None)
  Receive Date: 20100427
  Receipt Date: 20100419
  Transmission Date: 20101027
  Serious: Yes (Other)
  Sender: FDA-Public Use
  Company Number: CN-JNJFOC-20100404977

PATIENT

DRUGS (2)
  1. SPORANOX [Suspect]
     Indication: DRUG USE FOR UNKNOWN INDICATION
     Dosage: 200 MG TWICE A DAY ON THE FIRST AND SECOND DAY
     Route: 041
  2. SPORANOX [Suspect]
     Dosage: 200 MG EVERY DAY ON THE THIRD DAY
     Route: 041

REACTIONS (1)
  - CONVULSION [None]
